FAERS Safety Report 21131418 (Version 1)
Quarter: 2022Q3

REPORT INFORMATION
  Report Type: Spontaneous
  Country: US (occurrence: US)
  Receive Date: 20220726
  Receipt Date: 20220726
  Transmission Date: 20221026
  Serious: Yes (Other)
  Sender: FDA-Public Use
  Company Number: US-FreseniusKabi-FK202210302

PATIENT
  Age: 12 Year
  Sex: Male

DRUGS (7)
  1. METHYLPREDNISOLONE [Suspect]
     Active Substance: METHYLPREDNISOLONE
     Indication: Uveitis
     Dosage: FOR 3 CONSECUTIVE DAYS MONTHLY (WITH ONE DAY RECEIVING BOTH INFLIXIMAB AND METHYLPREDNISOLONE)
     Route: 042
  2. METHYLPREDNISOLONE [Suspect]
     Active Substance: METHYLPREDNISOLONE
     Dosage: FREQUENCY WAS REDUCED TO ONCE PER MONTH
     Route: 042
  3. METHYLPREDNISOLONE [Suspect]
     Active Substance: METHYLPREDNISOLONE
     Dosage: AFTER AN ADDITIONAL 10 MONTHS, IT WAS FURTHER REDUCED TO 500 MG MONTHLY
     Route: 042
  4. INFLIXIMAB [Suspect]
     Active Substance: INFLIXIMAB
     Indication: Uveitis
     Dosage: MONTHLY (WITH ONE DAY RECEIVING BOTH INFLIXIMAB AND METHYLPREDNISOLONE)
  5. PREDNISONE [Suspect]
     Active Substance: PREDNISONE
     Indication: Uveitis
     Dosage: DAILY
     Route: 048
  6. PREDNISONE [Suspect]
     Active Substance: PREDNISONE
     Dosage: TAPERED GRADUALLY TO 1 MG DAILY OVER THE PERIOD OF 2 YEARS.
     Route: 048
  7. DIFLUPREDNATE [Suspect]
     Active Substance: DIFLUPREDNATE
     Indication: Uveitis

REACTIONS (11)
  - Leukopenia [Recovered/Resolved]
  - Fatigue [Recovered/Resolved]
  - Asthenia [Recovered/Resolved]
  - Granulocytosis [Recovered/Resolved]
  - Red blood cell abnormality [Recovered/Resolved]
  - Hepatic enzyme increased [Recovered/Resolved]
  - Blood glucose increased [Recovered/Resolved]
  - Blood creatine phosphokinase increased [Recovered/Resolved]
  - Blood lactate dehydrogenase increased [Recovered/Resolved]
  - Cataract subcapsular [Unknown]
  - Weight increased [Unknown]
